FAERS Safety Report 10512594 (Version 1)
Quarter: 2014Q4

REPORT INFORMATION
  Report Type: Spontaneous
  Country: CN (occurrence: CN)
  Receive Date: 20141011
  Receipt Date: 20141011
  Transmission Date: 20150528
  Serious: Yes (Death)
  Sender: FDA-Public Use
  Company Number: CN-GE HEALTHCARE MEDICAL DIAGNOSTICS-OMPQ-PR-1409S-1227

PATIENT
  Age: 18 Year
  Sex: Male

DRUGS (2)
  1. OMNIPAQUE [Suspect]
     Active Substance: IOHEXOL
     Indication: PRODUCT USED FOR UNKNOWN INDICATION
     Dosage: DOSE NOT REPORTED
     Route: 042
     Dates: start: 20140819, end: 20140819
  2. OMNIPAQUE [Suspect]
     Active Substance: IOHEXOL
     Indication: DIAGNOSTIC PROCEDURE

REACTIONS (10)
  - Blood pressure immeasurable [Fatal]
  - Vomiting [Fatal]
  - Arrhythmia [Fatal]
  - Cyanosis [Fatal]
  - Nausea [Fatal]
  - Pallor [Fatal]
  - Loss of consciousness [Fatal]
  - Bradycardia [Fatal]
  - Pulse absent [Fatal]
  - Posture abnormal [Fatal]

NARRATIVE: CASE EVENT DATE: 20140819
